FAERS Safety Report 24286670 (Version 1)
Quarter: 2024Q3

REPORT INFORMATION
  Report Type: Spontaneous
  Country: US (occurrence: US)
  Receive Date: 20240905
  Receipt Date: 20240905
  Transmission Date: 20241016
  Serious: Yes (Hospitalization, Other)
  Sender: CATALYST PHARMA
  Company Number: US-CATALYSTPHARMACEUTICALPARTNERS-US-CATA-24-00943

PATIENT
  Age: 16 Year
  Sex: Female
  Weight: 32.2 kg

DRUGS (31)
  1. FYCOMPA [Suspect]
     Active Substance: PERAMPANEL
     Indication: Product used for unknown indication
     Dosage: UNKNOWN
     Route: 065
  2. FYCOMPA [Suspect]
     Active Substance: PERAMPANEL
     Dosage: INCREASED DOSE
     Route: 065
     Dates: start: 2024
  3. NBI-921352 [Suspect]
     Active Substance: NBI-921352
     Indication: Epileptic encephalopathy
     Dosage: 30 MG THREE TIMES A DAY
     Dates: start: 20220809
  4. ATROPINE [Concomitant]
     Active Substance: ATROPINE
     Indication: Restrictive pulmonary disease
     Dosage: UNKNOWN
     Route: 065
     Dates: start: 2020
  5. CARAFATE [Concomitant]
     Active Substance: SUCRALFATE
     Indication: Gastrooesophageal reflux disease
     Dosage: UNKNOWN
     Route: 065
     Dates: start: 2013
  6. VITAMIN D [Concomitant]
     Active Substance: VITAMIN D NOS
     Indication: Prophylaxis
     Dosage: UNK, UNK
     Route: 065
     Dates: start: 2018
  7. TRIAMCINOLONE [Concomitant]
     Active Substance: TRIAMCINOLONE
     Indication: Prophylaxis
     Dosage: UNKNOWN
     Route: 065
     Dates: start: 2012
  8. SODIUM CHLORIDE [Concomitant]
     Active Substance: SODIUM CHLORIDE
     Indication: Restrictive pulmonary disease
     Dosage: UNKNOWN
     Route: 055
     Dates: start: 202108
  9. NATURELO WHOLE FOOD MULTIVITAMIN [Concomitant]
     Indication: Prophylaxis
     Dosage: UNKNOWN
     Route: 065
     Dates: start: 2019
  10. PROBIOTICS NOS [Concomitant]
     Active Substance: PROBIOTICS NOS
     Indication: Prophylaxis
     Dosage: UNKNOWN
     Route: 065
     Dates: start: 20220313
  11. FLEET ENEMA [Concomitant]
     Active Substance: SODIUM PHOSPHATE, DIBASIC\SODIUM PHOSPHATE, MONOBASIC
     Indication: Constipation
     Dosage: UNKNOWN
     Route: 065
     Dates: start: 20220401
  12. CETIRIZINE HYDROCHLORIDE [Concomitant]
     Active Substance: CETIRIZINE HYDROCHLORIDE
     Indication: Seasonal allergy
     Dosage: UNKNOWN
     Route: 065
     Dates: start: 2017
  13. FLOVENT HFA [Concomitant]
     Active Substance: FLUTICASONE PROPIONATE
     Indication: Restrictive pulmonary disease
     Dosage: UNKNOWN
     Route: 065
     Dates: start: 202108
  14. FLONASE [Concomitant]
     Active Substance: FLUTICASONE PROPIONATE
     Indication: Seasonal allergy
     Dosage: UNKNOWN
     Route: 065
     Dates: start: 2019
  15. XOPENEX [Concomitant]
     Active Substance: LEVALBUTEROL HYDROCHLORIDE
     Indication: Restrictive pulmonary disease
     Dosage: UNKNOWN
     Route: 065
     Dates: start: 202108
  16. NEXIUM [Concomitant]
     Active Substance: ESOMEPRAZOLE MAGNESIUM
     Indication: Gastrooesophageal reflux disease
     Dosage: UNKNOWN
     Route: 065
     Dates: start: 2015
  17. NORETHINDRONE [Concomitant]
     Active Substance: NORETHINDRONE
     Indication: Prophylaxis
     Dosage: UNKNOWN
     Route: 065
     Dates: start: 202105
  18. FAMOTIDINE [Concomitant]
     Active Substance: FAMOTIDINE
     Indication: Gastrooesophageal reflux disease
     Dosage: UNKNOWN
     Route: 065
     Dates: start: 2019
  19. MIRALAX [Concomitant]
     Active Substance: POLYETHYLENE GLYCOL 3350
     Indication: Constipation
     Dosage: UNKNOWN
     Route: 065
     Dates: start: 2013
  20. BACLOFEN [Concomitant]
     Active Substance: BACLOFEN
     Indication: Muscle spasticity
     Dosage: UNKNOWN
     Route: 065
     Dates: start: 20220829
  21. PULMOZYME [Concomitant]
     Active Substance: DORNASE ALFA
     Indication: Restrictive pulmonary disease
     Dosage: UNKNOWN
     Route: 065
     Dates: start: 20230315
  22. MEDROXYPROGESTERONE [Concomitant]
     Active Substance: MEDROXYPROGESTERONE
     Indication: Prophylaxis
     Dosage: UNKNOWN
     Route: 065
     Dates: start: 20231222
  23. TRILEPAT [Concomitant]
     Indication: Seizure prophylaxis
     Dosage: UNKNOWN
     Route: 065
     Dates: start: 2011
  24. ONFI [Concomitant]
     Active Substance: CLOBAZAM
     Indication: Seizure prophylaxis
     Dosage: UNKNOWN
     Route: 065
     Dates: start: 20221228
  25. ONFI [Concomitant]
     Active Substance: CLOBAZAM
     Dosage: 10 MG
     Route: 065
  26. ONFI [Concomitant]
     Active Substance: CLOBAZAM
     Dosage: 5 MG
     Route: 065
  27. DILANTIN [Concomitant]
     Active Substance: PHENYTOIN
     Indication: Seizure prophylaxis
     Dosage: UNKNOWN
     Route: 065
     Dates: start: 20230125
  28. VANCOMYCIN [Concomitant]
     Active Substance: VANCOMYCIN
     Indication: Product used for unknown indication
     Dosage: UNKNOWN
     Route: 065
     Dates: start: 20240414, end: 20240416
  29. CEFTRIAXONE [Concomitant]
     Active Substance: CEFTRIAXONE\CEFTRIAXONE SODIUM
     Indication: Product used for unknown indication
     Dosage: UNKNOWN
     Route: 065
     Dates: start: 20240411, end: 20240413
  30. ZOSYN [Concomitant]
     Active Substance: PIPERACILLIN SODIUM\TAZOBACTAM SODIUM
     Indication: Product used for unknown indication
     Dosage: UNKNOWN
     Route: 065
     Dates: start: 20240420, end: 20240422
  31. OXYGEN [Concomitant]
     Active Substance: OXYGEN
     Indication: Prophylaxis
     Dosage: UNKNOWN
     Route: 065
     Dates: start: 2019

REACTIONS (10)
  - Status epilepticus [Unknown]
  - Urinary retention [Unknown]
  - Acute respiratory failure [Recovered/Resolved]
  - Feeling of relaxation [Unknown]
  - Urine output decreased [Unknown]
  - Rhinovirus infection [Unknown]
  - Enterovirus infection [Unknown]
  - Dyspnoea [Unknown]
  - Escherichia urinary tract infection [Unknown]
  - Somnolence [Unknown]

NARRATIVE: CASE EVENT DATE: 20240101
